FAERS Safety Report 18898751 (Version 1)
Quarter: 2021Q1

REPORT INFORMATION
  Report Type: Spontaneous
  Country: US (occurrence: US)
  Receive Date: 20210215
  Receipt Date: 20210215
  Transmission Date: 20210420
  Serious: No
  Sender: FDA-Public Use
  Company Number: None

PATIENT
  Sex: Male
  Weight: 142.43 kg

DRUGS (1)
  1. BUPRENORPHINE/NALOXONE SUBLINGUAL FILM 8 MG/2 MG [Suspect]
     Active Substance: BUPRENORPHINE\NALOXONE
     Indication: DRUG USE DISORDER
     Dates: start: 20170306

REACTIONS (2)
  - Impaired work ability [None]
  - Impaired driving ability [None]
